FAERS Safety Report 17156246 (Version 1)
Quarter: 2019Q4

REPORT INFORMATION
  Report Type: Spontaneous
  Country: US (occurrence: US)
  Receive Date: 20191216
  Receipt Date: 20191216
  Transmission Date: 20200122
  Serious: No
  Sender: FDA-Public Use
  Company Number: NVSC2019US062922

PATIENT
  Sex: Female

DRUGS (1)
  1. TOBRADEX [Suspect]
     Active Substance: DEXAMETHASONE\TOBRAMYCIN
     Indication: EYE INFECTION
     Route: 065

REACTIONS (5)
  - Eye infection [Unknown]
  - Periorbital swelling [Unknown]
  - Eye pain [Unknown]
  - Eye pruritus [Unknown]
  - Insomnia [Unknown]
